FAERS Safety Report 4880084-7 (Version None)
Quarter: 2005Q4

REPORT INFORMATION
  Report Type: 
  Country: None (occurrence: None)
  Receive Date: 20051223
  Receipt Date: 20050913
  Transmission Date: 20060501
  Serious: Yes (Hospitalization)
  Sender: FDA-Public Use
  Company Number: 05P-163-0310878-00

PATIENT
  Age: 61 Year
  Sex: Female
  Weight: 95.2554 kg

DRUGS (24)
  1. HUMIRA [Suspect]
     Indication: RHEUMATOID ARTHRITIS
     Dosage: 40 MG, 1 IN 2 WK, SUBCUTANEOUS
     Route: 058
     Dates: start: 20040901, end: 20041001
  2. ACETYLSALICYLIC ACID SRT [Concomitant]
  3. ATENOLOL [Concomitant]
  4. SULFAZINE [Concomitant]
  5. HUMAN MIXTARD [Concomitant]
  6. ATORVASTATIN CALCIUM [Concomitant]
  7. LISINOPRIL [Concomitant]
  8. FLUOSETINE [Concomitant]
  9. METHOTREXATE [Concomitant]
  10. FOLIC ACID [Concomitant]
  11. HYDROXYCHLOROQUINE SULFATE [Concomitant]
  12. DICLOFENAC [Concomitant]
  13. PREDNISONE [Concomitant]
  14. CYCLOBENZAPRINE HCL [Concomitant]
  15. FUROSEMIDE [Concomitant]
  16. POTASSIUM CHLORIDE [Concomitant]
  17. ALENDRONATE SODIUM [Concomitant]
  18. SALBUTAMOL [Concomitant]
  19. FLUTICASONE PROPIONATE [Concomitant]
  20. HYDROCODONE BITARTRATE [Concomitant]
  21. MULTIVITAMIN [Concomitant]
  22. CALCIUM GLUCONATE [Concomitant]
  23. MAGNESIUM [Concomitant]
  24. ZINC [Concomitant]

REACTIONS (1)
  - CARDIAC FAILURE CONGESTIVE [None]
